FAERS Safety Report 19235492 (Version 1)
Quarter: 2021Q2

REPORT INFORMATION
  Report Type: Spontaneous
  Country: US (occurrence: US)
  Receive Date: 20210510
  Receipt Date: 20210510
  Transmission Date: 20210717
  Serious: Yes (Hospitalization, Other)
  Sender: FDA-Public Use
  Company Number: US-LUPIN PHARMACEUTICALS INC.-2021-06341

PATIENT
  Age: 7 Month
  Sex: Male
  Weight: 8 kg

DRUGS (4)
  1. CHOLECALCIFEROL [Concomitant]
     Active Substance: CHOLECALCIFEROL
     Indication: PRODUCT USED FOR UNKNOWN INDICATION
     Dosage: UNK
     Route: 065
  2. PARACETAMOL [Concomitant]
     Active Substance: ACETAMINOPHEN
     Indication: PREOPERATIVE CARE
     Dosage: UNK
     Route: 042
  3. DOXYCYCLINE. [Suspect]
     Active Substance: DOXYCYCLINE
     Indication: SCLEROTHERAPY
     Dosage: 70ML OF 10MG/ML DOXYCYCLINE (700MG) WAS INJECTED INTO THE CYST. TOTAL IN DWELL TIME WAS 30 MINUTES A
     Route: 026
  4. SEVOFLURANE. [Concomitant]
     Active Substance: SEVOFLURANE
     Indication: ANAESTHESIA
     Dosage: SEVOFLURANE GAS VIA LARYNGEAL MASK AIR WAY
     Route: 065

REACTIONS (1)
  - Intracranial pressure increased [Recovered/Resolved]
